FAERS Safety Report 9166117 (Version 1)
Quarter: 2013Q1

REPORT INFORMATION
  Report Type: Spontaneous
  Country: US (occurrence: US)
  Receive Date: 20130315
  Receipt Date: 20130315
  Transmission Date: 20140127
  Serious: No
  Sender: FDA-Public Use
  Company Number: US-B.I. PHARMACEUTICALS,INC./RIDGEFIELD-2013-BI-06800BP

PATIENT
  Sex: Female

DRUGS (7)
  1. SPIRIVA [Suspect]
     Indication: CHRONIC OBSTRUCTIVE PULMONARY DISEASE
     Dosage: 18 MCG
     Route: 055
     Dates: start: 20130214
  2. SPIRIVA [Suspect]
     Route: 048
     Dates: start: 20130311, end: 20130311
  3. LEVOTHYROXINE [Concomitant]
     Indication: THYROID DISORDER
  4. VERAPAMIL [Concomitant]
  5. WARFARIN [Concomitant]
  6. LOSARTAN [Concomitant]
  7. SYMBICORT [Concomitant]
     Indication: CHRONIC OBSTRUCTIVE PULMONARY DISEASE
     Dosage: 2 PUF
     Dates: start: 201109

REACTIONS (1)
  - Incorrect route of drug administration [Recovered/Resolved]
